FAERS Safety Report 22174946 (Version 1)
Quarter: 2023Q2

REPORT INFORMATION
  Report Type: Spontaneous
  Country: US (occurrence: US)
  Receive Date: 20230405
  Receipt Date: 20230405
  Transmission Date: 20230721
  Serious: No
  Sender: FDA-Public Use
  Company Number: US-TEVA-2023-US-2871197

PATIENT
  Age: 84 Year
  Sex: Male

DRUGS (1)
  1. ALPRAZOLAM [Suspect]
     Active Substance: ALPRAZOLAM
     Indication: Insomnia
     Dosage: .5 MILLIGRAM DAILY; 0.5 MG

REACTIONS (8)
  - Taste disorder [Unknown]
  - Abdominal discomfort [Unknown]
  - Throat irritation [Unknown]
  - Oesophageal pain [Unknown]
  - Oropharyngeal discomfort [Unknown]
  - Drug ineffective [Unknown]
  - Wrong technique in product usage process [Unknown]
  - Product use in unapproved indication [Unknown]

NARRATIVE: CASE EVENT DATE: 20230301
